FAERS Safety Report 6589559-6 (Version None)
Quarter: 2010Q1

REPORT INFORMATION
  Report Type: 
  Country: None (occurrence: None)
  Receive Date: 20100212
  Receipt Date: 20100127
  Transmission Date: 20100710
  Serious: Yes (Hospitalization)
  Sender: FDA-Public Use
  Company Number: 1000006764

PATIENT
  Age: 26 Year
  Sex: Male

DRUGS (2)
  1. MILNACIPRAN (MILNACIPRAN HYDROCHLORIDE) (CAPSULES) [Suspect]
     Indication: DEPRESSION
     Dosage: 1 DOSAGE FORMS (1 DOSAGE FORMS, 1 IN 1 D) (20 DOSAGE FORMS)
  2. CITALOPRAM (CITALOPRAM HYDROBROMIDE) (CAPSULES) [Suspect]
     Indication: DEPRESSION
     Dosage: 1 DOSAGE FORMS (1 DOSAGE FORMS, 1 IN 1 D), ORAL (10 DOSAGE FORMS)
     Route: 048

REACTIONS (5)
  - DRUG INTERACTION [None]
  - DRUG TOXICITY [None]
  - EXTRAPYRAMIDAL DISORDER [None]
  - MULTIPLE DRUG OVERDOSE INTENTIONAL [None]
  - SEROTONIN SYNDROME [None]
